FAERS Safety Report 11872276 (Version 1)
Quarter: 2015Q4

REPORT INFORMATION
  Report Type: Spontaneous
  Country: US (occurrence: US)
  Receive Date: 20151228
  Receipt Date: 20151228
  Transmission Date: 20160305
  Serious: Yes (Hospitalization, Other)
  Sender: FDA-Public Use
  Company Number: US-TEVA-620885USA

PATIENT
  Age: 49 Year
  Sex: Male

DRUGS (8)
  1. MITOMYCIN. [Suspect]
     Active Substance: MITOMYCIN
     Indication: ANAL SQUAMOUS CELL CARCINOMA
     Route: 042
  2. MESNA. [Concomitant]
     Active Substance: MESNA
     Indication: ANAL SQUAMOUS CELL CARCINOMA
     Dosage: 200MG/M2 BEFORE AND 400MG/M2 AFTER IFOSFAMIDE
     Route: 042
  3. PEGFILGRASTIM [Concomitant]
     Active Substance: PEGFILGRASTIM
     Indication: ANAL SQUAMOUS CELL CARCINOMA
     Dosage: 6MG ON DAY 5
     Route: 058
  4. IFOSFAMIDE. [Suspect]
     Active Substance: IFOSFAMIDE
     Indication: ANAL CANCER METASTATIC
     Dosage: 1000 MG/M2/DAY DAY1-4
     Route: 065
  5. PACLITAXEL. [Suspect]
     Active Substance: PACLITAXEL
     Indication: ANAL CANCER METASTATIC
     Dosage: 175 MG/M2/DAY ON DAY 1
     Route: 065
  6. CETUXIMAB [Suspect]
     Active Substance: CETUXIMAB
     Indication: ANAL SQUAMOUS CELL CARCINOMA
     Dosage: 250 MG/M2 FOR SUBSEQUENT WEEKLY DOSES
     Route: 042
  7. CISPLATIN. [Suspect]
     Active Substance: CISPLATIN
     Indication: ANAL SQUAMOUS CELL CARCINOMA
     Dosage: ON DAY 1
     Route: 065
  8. CETUXIMAB [Suspect]
     Active Substance: CETUXIMAB
     Indication: ANAL SQUAMOUS CELL CARCINOMA
     Dosage: 400 MG/M2 WITH THE FIRST DOSE, CYCLE REPEATED EVERY 28 DAYS
     Route: 042

REACTIONS (5)
  - Rectal abscess [Recovering/Resolving]
  - Febrile neutropenia [Unknown]
  - Fatigue [Unknown]
  - Alopecia [Unknown]
  - Rash [Unknown]
